FAERS Safety Report 23731160 (Version 3)
Quarter: 2025Q2

REPORT INFORMATION
  Report Type: Report from Study
  Country: CO (occurrence: CO)
  Receive Date: 20240411
  Receipt Date: 20250405
  Transmission Date: 20250716
  Serious: Yes (Other)
  Sender: TAKEDA
  Company Number: CO-TAKEDA-CO201940613

PATIENT
  Age: 64 Year
  Sex: Male
  Weight: 61 kg

DRUGS (40)
  1. ICATIBANT [Suspect]
     Active Substance: ICATIBANT ACETATE
     Indication: Hereditary angioedema
  2. ICATIBANT [Suspect]
     Active Substance: ICATIBANT ACETATE
     Dosage: UNK, QD
     Dates: start: 20180201
  3. ICATIBANT [Suspect]
     Active Substance: ICATIBANT ACETATE
     Dates: start: 20180303, end: 20180303
  4. ICATIBANT [Suspect]
     Active Substance: ICATIBANT ACETATE
  5. ICATIBANT [Suspect]
     Active Substance: ICATIBANT ACETATE
  6. ICATIBANT [Suspect]
     Active Substance: ICATIBANT ACETATE
     Dates: start: 20191119, end: 20191119
  7. ICATIBANT [Suspect]
     Active Substance: ICATIBANT ACETATE
  8. ICATIBANT [Suspect]
     Active Substance: ICATIBANT ACETATE
  9. ICATIBANT [Suspect]
     Active Substance: ICATIBANT ACETATE
  10. ICATIBANT [Suspect]
     Active Substance: ICATIBANT ACETATE
  11. ICATIBANT [Suspect]
     Active Substance: ICATIBANT ACETATE
  12. ICATIBANT [Suspect]
     Active Substance: ICATIBANT ACETATE
  13. ICATIBANT [Suspect]
     Active Substance: ICATIBANT ACETATE
  14. ICATIBANT [Suspect]
     Active Substance: ICATIBANT ACETATE
     Dosage: 30 MILLIGRAM, Q6HR
     Dates: start: 20220201
  15. ICATIBANT [Suspect]
     Active Substance: ICATIBANT ACETATE
  16. ICATIBANT [Suspect]
     Active Substance: ICATIBANT ACETATE
  17. ICATIBANT [Suspect]
     Active Substance: ICATIBANT ACETATE
  18. ICATIBANT [Suspect]
     Active Substance: ICATIBANT ACETATE
  19. ICATIBANT [Suspect]
     Active Substance: ICATIBANT ACETATE
  20. ICATIBANT [Suspect]
     Active Substance: ICATIBANT ACETATE
  21. ICATIBANT [Suspect]
     Active Substance: ICATIBANT ACETATE
  22. ICATIBANT [Suspect]
     Active Substance: ICATIBANT ACETATE
  23. ICATIBANT [Suspect]
     Active Substance: ICATIBANT ACETATE
  24. ICATIBANT [Suspect]
     Active Substance: ICATIBANT ACETATE
  25. ICATIBANT [Suspect]
     Active Substance: ICATIBANT ACETATE
     Dosage: 1 DOSAGE FORM, Q6HR
  26. ICATIBANT [Suspect]
     Active Substance: ICATIBANT ACETATE
     Dosage: 30 MILLIGRAM, Q6HR
  27. ICATIBANT [Suspect]
     Active Substance: ICATIBANT ACETATE
     Dosage: 1 DOSAGE FORM, Q6HR
  28. ICATIBANT [Suspect]
     Active Substance: ICATIBANT ACETATE
     Dosage: 1 DOSAGE FORM, Q6HR
  29. ICATIBANT [Suspect]
     Active Substance: ICATIBANT ACETATE
  30. ICATIBANT [Suspect]
     Active Substance: ICATIBANT ACETATE
     Dosage: 1 DOSAGE FORM, Q6HR
  31. ICATIBANT [Suspect]
     Active Substance: ICATIBANT ACETATE
     Dosage: 1 DOSAGE FORM, Q6HR
  32. ICATIBANT [Suspect]
     Active Substance: ICATIBANT ACETATE
     Dosage: 1 DOSAGE FORM, Q6HR
  33. ICATIBANT [Suspect]
     Active Substance: ICATIBANT ACETATE
  34. ICATIBANT [Suspect]
     Active Substance: ICATIBANT ACETATE
     Dosage: 1 DOSAGE FORM, Q6HR
  35. ICATIBANT [Suspect]
     Active Substance: ICATIBANT ACETATE
  36. ICATIBANT [Suspect]
     Active Substance: ICATIBANT ACETATE
     Dosage: 1 DOSAGE FORM, Q6HR
  37. ICATIBANT [Suspect]
     Active Substance: ICATIBANT ACETATE
     Dosage: UNK UNK, QD
  38. ICATIBANT [Suspect]
     Active Substance: ICATIBANT ACETATE
  39. ICATIBANT [Suspect]
     Active Substance: ICATIBANT ACETATE
  40. ICATIBANT [Suspect]
     Active Substance: ICATIBANT ACETATE
     Dates: start: 20180823, end: 20230716

REACTIONS (6)
  - Dysuria [Unknown]
  - Prostate cancer [Unknown]
  - Salivary hypersecretion [Unknown]
  - Treatment noncompliance [Unknown]
  - Weight decreased [Unknown]
  - Abdominal pain [Recovered/Resolved]

NARRATIVE: CASE EVENT DATE: 20220708
